FAERS Safety Report 7965160-4 (Version None)
Quarter: 2011Q4

REPORT INFORMATION
  Report Type: 
  Country: None (occurrence: None)
  Receive Date: 20111208
  Receipt Date: 20111114
  Transmission Date: 20120403
  Serious: No
  Sender: FDA-Public Use
  Company Number: US-BAYER-2011-111568

PATIENT
  Age: 82 Year
  Sex: Female
  Weight: 48 kg

DRUGS (3)
  1. ALEVE (CAPLET) [Suspect]
     Dosage: UNK
     Route: 048
     Dates: start: 20111113, end: 20111114
  2. ASCORBIC ACID [Concomitant]
  3. CALCIUM CARBONATE [Concomitant]

REACTIONS (1)
  - NO ADVERSE EVENT [None]
